FAERS Safety Report 10173268 (Version 3)
Quarter: 2014Q3

REPORT INFORMATION
  Report Type: Spontaneous
  Country: GB (occurrence: GB)
  Receive Date: 20140515
  Receipt Date: 20140822
  Transmission Date: 20150326
  Serious: Yes (Death, Other)
  Sender: FDA-Public Use
  Company Number: GB-BAXTER-2014BAX024530

PATIENT
  Sex: Female

DRUGS (2)
  1. TISSEEL FROZEN [Suspect]
     Active Substance: FIBRINOGEN HUMAN\THROMBIN HUMAN
     Indication: HAEMORRHAGE
     Route: 061
     Dates: start: 20140430
  2. [PSS GPN] FLOSEAL [Suspect]
     Active Substance: THROMBIN
     Indication: HAEMORRHAGE
     Route: 061
     Dates: start: 20140430

REACTIONS (2)
  - Haemorrhage [Not Recovered/Not Resolved]
  - Cardiac arrest [Fatal]

NARRATIVE: CASE EVENT DATE: 20140430
